FAERS Safety Report 12265718 (Version 1)
Quarter: 2016Q2

REPORT INFORMATION
  Report Type: Report from Study
  Country: CA (occurrence: CA)
  Receive Date: 20160413
  Receipt Date: 20160413
  Transmission Date: 20160815
  Serious: Yes (Hospitalization)
  Sender: FDA-Public Use
  Company Number: CA-ACTELION-A-US2016-134197

PATIENT
  Age: 55 Year
  Sex: Female
  Weight: 62.13 kg

DRUGS (12)
  1. VIAGRA [Concomitant]
     Active Substance: SILDENAFIL CITRATE
  2. DOMPERIDONE [Concomitant]
     Active Substance: DOMPERIDONE
  3. SYMBICORT [Concomitant]
     Active Substance: BUDESONIDE\FORMOTEROL FUMARATE DIHYDRATE
  4. PANTOLOC [Concomitant]
     Active Substance: PANTOPRAZOLE SODIUM
  5. LASIX [Concomitant]
     Active Substance: FUROSEMIDE
  6. ALDACTONE [Concomitant]
     Active Substance: SPIRONOLACTONE
  7. COLACE [Concomitant]
     Active Substance: DOCUSATE SODIUM
  8. OXYGEN. [Concomitant]
     Active Substance: OXYGEN
     Dosage: 3-4 LITERS DURING THE DAY, 5 LITERS AT NIGHT L, CONT INFUS
  9. VELETRI [Suspect]
     Active Substance: EPOPROSTENOL
     Indication: PULMONARY ARTERIAL HYPERTENSION
     Dosage: 17 NG/KG, PER MIN
     Route: 042
     Dates: start: 20131111
  10. ATIVAN [Concomitant]
     Active Substance: LORAZEPAM
  11. XANAX [Concomitant]
     Active Substance: ALPRAZOLAM
  12. FLONASE [Concomitant]
     Active Substance: FLUTICASONE PROPIONATE

REACTIONS (1)
  - Pneumonia [Recovered/Resolved]

NARRATIVE: CASE EVENT DATE: 20160320
